FAERS Safety Report 19436451 (Version 1)
Quarter: 2021Q2

REPORT INFORMATION
  Report Type: Spontaneous
  Country: FR (occurrence: FR)
  Receive Date: 20210618
  Receipt Date: 20210618
  Transmission Date: 20210717
  Serious: Yes (Other)
  Sender: FDA-Public Use
  Company Number: FR-FRESENIUS KABI-FK202106064

PATIENT
  Age: 57 Year
  Sex: Female

DRUGS (4)
  1. OXALIPLATIN (MANUFACTURER UNKNOWN) [Suspect]
     Active Substance: OXALIPLATIN
     Indication: ADENOCARCINOMA
     Dosage: FIRST CYCLE AND SECOND CYCLE OF FOLFIRINOX; THIRD CYCLE WAS LIMITED TO FOLFOX
     Route: 065
  2. IRINOTECAN (MANUFACTURER UNKNOWN) [Suspect]
     Active Substance: IRINOTECAN
     Indication: ADENOCARCINOMA
     Dosage: FIRST CYCLE OF FOLFIRINOX AND SECOND CYCLE OF FOLFIRINOX WITH DECREASE IN THE IRINOTECAN DOSE
     Route: 065
  3. FOLINIC ACID [Suspect]
     Active Substance: LEUCOVORIN
     Indication: ADENOCARCINOMA
     Dosage: FIRST CYCLE AND SECOND CYCLE OF FOLFIRINOX; THIRD CYCLE WAS LIMITED TO FOLFOX
     Route: 065
  4. FLUOROURACIL. [Suspect]
     Active Substance: FLUOROURACIL
     Indication: ADENOCARCINOMA
     Dosage: 1ST CYCLE; 2ND CYCLE OF FOLFIRINOX; 3RD CYCLE FOLFOX; CONTINUED A 5FU REGIMEN UNTIL THE 12TH CYCLE
     Route: 065

REACTIONS (2)
  - Diarrhoea [Unknown]
  - Blindness [Unknown]
